FAERS Safety Report 5278454-0 (Version None)
Quarter: 2007Q1

REPORT INFORMATION
  Report Type: 
  Country: None (occurrence: None)
  Receive Date: 20070322
  Receipt Date: 20070312
  Transmission Date: 20070707
  Serious: Yes (Other)
  Sender: FDA-Public Use
  Company Number: 238303

PATIENT
  Age: 75 Year
  Sex: Male

DRUGS (6)
  1. LUCENTIS [Suspect]
     Indication: MACULAR DEGENERATION
     Dosage: 0.05 ML, INTRAVITREAL
     Dates: start: 20070118
  2. TELMISARTAN (TELMISARTAN) [Concomitant]
  3. DILTIAZEM HCL [Concomitant]
  4. TRICOR [Concomitant]
  5. ZETIA [Concomitant]
  6. FLOMAX [Concomitant]

REACTIONS (1)
  - THROMBOSIS [None]
